FAERS Safety Report 24958684 (Version 2)
Quarter: 2025Q2

REPORT INFORMATION
  Report Type: Spontaneous
  Country: PL (occurrence: PL)
  Receive Date: 20250212
  Receipt Date: 20250405
  Transmission Date: 20250716
  Serious: Yes (Hospitalization)
  Sender: AUROBINDO
  Company Number: PL-AUROBINDO-AUR-APL-2025-006169

PATIENT
  Age: 50 Year
  Sex: Male

DRUGS (6)
  1. AMOXICILLIN [Suspect]
     Active Substance: AMOXICILLIN
     Indication: Skin lesion
     Route: 065
  2. METRONIDAZOLE [Suspect]
     Active Substance: METRONIDAZOLE
     Indication: Skin lesion
     Route: 065
  3. CLINDAMYCIN [Suspect]
     Active Substance: CLINDAMYCIN
     Indication: Skin lesion
     Route: 065
  4. Betamethasone;Clotrimazole;Gentamicin [Concomitant]
     Indication: Skin lesion
     Route: 065
  5. Bacitracin zinc;Neomycin sulfate;Polymyxin b sulfate [Concomitant]
     Indication: Skin lesion
     Route: 065
  6. Hypochlorous acid;Sodium hypochlorite [Concomitant]
     Indication: Skin lesion
     Route: 065

REACTIONS (4)
  - Hypersensitivity [Recovered/Resolved]
  - Drug ineffective [Unknown]
  - Rash papular [Unknown]
  - Therapeutic product ineffective for unapproved indication [Unknown]
